FAERS Safety Report 25210940 (Version 2)
Quarter: 2025Q2

REPORT INFORMATION
  Report Type: Spontaneous
  Country: RU (occurrence: None)
  Receive Date: 20250417
  Receipt Date: 20250515
  Transmission Date: 20250717
  Serious: Yes (Other)
  Sender: INCYTE
  Company Number: RU-INCYTE CORPORATION-2025IN003253

PATIENT
  Age: 50 Year
  Weight: 71 kg

DRUGS (2)
  1. PEMAZYRE [Suspect]
     Active Substance: PEMIGATINIB
     Indication: Cholangiocarcinoma
     Route: 065
  2. FUTIBATINIB [Concomitant]
     Active Substance: FUTIBATINIB
     Indication: Product used for unknown indication
     Route: 065

REACTIONS (8)
  - Metastases to bone [Recovering/Resolving]
  - Metastases to lymph nodes [Unknown]
  - Retroperitoneal neoplasm metastatic [Unknown]
  - Metastases to adrenals [Unknown]
  - Malignant neoplasm progression [Unknown]
  - Cholangiocarcinoma [Unknown]
  - Abdominal lymphadenopathy [Unknown]
  - Disease progression [Unknown]
